FAERS Safety Report 23860403 (Version 1)
Quarter: 2024Q2

REPORT INFORMATION
  Report Type: Report from Study
  Country: HU (occurrence: HU)
  Receive Date: 20240516
  Receipt Date: 20240516
  Transmission Date: 20240715
  Serious: Yes (Hospitalization)
  Sender: FDA-Public Use
  Company Number: HU-ABBVIE-5759223

PATIENT
  Age: 81 Year
  Sex: Female

DRUGS (16)
  1. CARBIDOPA\LEVODOPA [Suspect]
     Active Substance: CARBIDOPA\LEVODOPA
     Indication: Product used for unknown indication
     Dosage: MORNING DOSE: 11.0 ML; CONTINUOUS DOSE: 3.0  ML/HOUR; EXTRA DOSE: 1.5 ML
     Route: 050
     Dates: start: 20240416, end: 20240509
  2. CARBIDOPA\LEVODOPA [Suspect]
     Active Substance: CARBIDOPA\LEVODOPA
  3. PANTOPRAZOLE SODIUM [Concomitant]
     Active Substance: PANTOPRAZOLE SODIUM
     Indication: Gastrooesophageal reflux disease
     Dosage: FORM STRENGTH: 40 MILLIGRAM
     Route: 048
     Dates: start: 2022
  4. BENSERAZIDE HYDROCHLORIDE\LEVODOPA [Concomitant]
     Active Substance: BENSERAZIDE HYDROCHLORIDE\LEVODOPA
     Indication: Parkinson^s disease
     Dosage: 200 MG LEVODOPA, 50 MG BENSERAZIDE / TABLET
     Route: 048
     Dates: start: 20240509
  5. BENSERAZIDE HYDROCHLORIDE\LEVODOPA [Concomitant]
     Active Substance: BENSERAZIDE HYDROCHLORIDE\LEVODOPA
     Indication: Parkinson^s disease
     Dosage: 100 MG LEVODOPA, 25 MG BENSERAZIDE / TABLET
     Dates: start: 20240509
  6. FUROSEMIDE [Concomitant]
     Active Substance: FUROSEMIDE
     Indication: Hypertension
     Dosage: FORM STRENGTH: 40 MILLIGRAM?FREQUENCY: 1X2 TABLETS DAILY
     Route: 048
     Dates: start: 2014
  7. BENSERAZIDE HYDROCHLORIDE\LEVODOPA [Concomitant]
     Active Substance: BENSERAZIDE HYDROCHLORIDE\LEVODOPA
     Indication: Parkinson^s disease
     Route: 048
     Dates: start: 20240509
  8. POTASSIUM CHLORIDE [Concomitant]
     Active Substance: POTASSIUM CHLORIDE
     Indication: Hypertension
     Dosage: FORM STRENGTH: 600 MILLIGRAM?KALDYUM R
     Route: 048
     Dates: start: 2014
  9. BISOPROLOL [Concomitant]
     Active Substance: BISOPROLOL\BISOPROLOL FUMARATE
     Indication: Cardiac failure
     Dosage: FORM STRENGTH: 2.5 MILLIGRAM
     Route: 048
     Dates: start: 2016
  10. CLOPIDOGREL BISULFATE [Concomitant]
     Active Substance: CLOPIDOGREL BISULFATE
     Indication: Prophylaxis
     Dosage: FORM STRENGTH: 75 MILLIGRAM?START DATE: SINCE YEARS
     Route: 048
  11. .ALPHA.-LIPOIC ACID [Concomitant]
     Active Substance: .ALPHA.-LIPOIC ACID
     Indication: Polyneuropathy
     Dosage: FORM STRENGTH: 600 MILLIGRAM
     Route: 048
     Dates: start: 2023
  12. EZETIMIBE [Concomitant]
     Active Substance: EZETIMIBE
     Indication: Blood cholesterol increased
     Dosage: FORM STRENGTH: 10 MILLIGRAM?FREQUENCY: 1 TABLET IN THE EVENING
     Route: 048
     Dates: start: 2018
  13. SPIRONOLACTONE [Concomitant]
     Active Substance: SPIRONOLACTONE
     Indication: Hypertension
     Dosage: FORM STRENGTH: 25 MG?FREQUENCY-1X2 TABLETS DAILY
     Route: 048
     Dates: start: 202311
  14. VANCOMYCIN [Concomitant]
     Active Substance: VANCOMYCIN
     Indication: Clostridium difficile infection
     Dosage: FORM STRENGTH-125 MILLIGRAM
     Route: 048
     Dates: start: 20240509
  15. QUETIAPINE FUMARATE [Concomitant]
     Active Substance: QUETIAPINE FUMARATE
     Indication: Hallucination
     Dosage: FORM STRENGTH- 25 MG?FREQUENCY- 2 TABLETS IN THE EVENING
     Route: 048
     Dates: start: 202303
  16. ERIMEXOL [Concomitant]
     Indication: Parkinson^s disease
     Dosage: FORM STRENGTH- 0.26 MILLIGRAM
     Route: 048
     Dates: start: 20240509

REACTIONS (4)
  - Parkinson^s disease [Not Recovered/Not Resolved]
  - Abdominal pain [Not Recovered/Not Resolved]
  - Clostridium difficile infection [Not Recovered/Not Resolved]
  - Colitis [Not Recovered/Not Resolved]

NARRATIVE: CASE EVENT DATE: 20240501
